FAERS Safety Report 20318180 (Version 1)
Quarter: 2022Q1

REPORT INFORMATION
  Report Type: Spontaneous
  Country: AU (occurrence: AU)
  Receive Date: 20220110
  Receipt Date: 20220110
  Transmission Date: 20220423
  Serious: Yes (Other)
  Sender: FDA-Public Use
  Company Number: AU-MYLANLABS-2022M1001367

PATIENT
  Age: 35 Year
  Sex: Male

DRUGS (4)
  1. VANCOMYCIN [Suspect]
     Active Substance: VANCOMYCIN
     Indication: Endocarditis
     Dosage: 2 GRAM, BID (4G OF VANCOMYCIN (2G X2) OVER 24 HOURS)
     Dates: start: 20211225, end: 20211227
  2. CEFTRIAXONE [Suspect]
     Active Substance: CEFTRIAXONE
     Indication: Endocarditis
     Dosage: 1 GRAM, BID
     Dates: start: 20211225, end: 20211226
  3. FLUCLOXACILLIN [Suspect]
     Active Substance: FLUCLOXACILLIN
     Indication: Endocarditis
     Dosage: 2 GRAM, Q6H
     Dates: start: 20211225, end: 20211226
  4. GENTAMICIN [Suspect]
     Active Substance: GENTAMICIN
     Indication: Endocarditis
     Dosage: UNK, QD (320MG X1 AND 400MG X1 OVER 24 HOURS)
     Dates: start: 20211225, end: 20211226

REACTIONS (2)
  - Acute kidney injury [Not Recovered/Not Resolved]
  - Extra dose administered [Unknown]

NARRATIVE: CASE EVENT DATE: 20211225
